FAERS Safety Report 17895772 (Version 2)
Quarter: 2020Q3

REPORT INFORMATION
  Report Type: Spontaneous
  Country: US (occurrence: US)
  Receive Date: 20200615
  Receipt Date: 20200718
  Transmission Date: 20201103
  Serious: No
  Sender: FDA-Public Use
  Company Number: US-GLAXOSMITHKLINE-US2020095397

PATIENT
  Sex: Male

DRUGS (2)
  1. FLONASE ALLERGY RELIEF [Suspect]
     Active Substance: FLUTICASONE PROPIONATE
     Indication: PRODUCT USED FOR UNKNOWN INDICATION
     Dosage: UNK (USED IT DAILY FOR YEARS)
  2. FLONASE ALLERGY RELIEF [Suspect]
     Active Substance: FLUTICASONE PROPIONATE
     Indication: PRODUCT USED FOR UNKNOWN INDICATION
     Dosage: UNK, USED DAILY FOR MANY YEARS

REACTIONS (4)
  - Wrong technique in device usage process [Unknown]
  - Device delivery system issue [Unknown]
  - Incorrect product administration duration [Unknown]
  - Product complaint [Unknown]
